FAERS Safety Report 9103726 (Version 1)
Quarter: 2013Q1

REPORT INFORMATION
  Report Type: Spontaneous
  Country: US (occurrence: US)
  Receive Date: 20130219
  Receipt Date: 20130219
  Transmission Date: 20140127
  Serious: No
  Sender: FDA-Public Use
  Company Number: US-PFIZER INC-2013013104

PATIENT
  Age: 73 Year
  Sex: Female
  Weight: 67.12 kg

DRUGS (4)
  1. DEPO-MEDROL [Suspect]
     Indication: ARTHRALGIA
     Dosage: 80 MG, CYCLIC
     Dates: start: 2008
  2. DEPO-MEDROL [Suspect]
     Indication: OSTEOARTHRITIS
     Dosage: 80 MG/ML, 1CC
     Route: 014
     Dates: start: 20130108, end: 20130108
  3. LIDOCAINE HCL [Suspect]
     Indication: OSTEOARTHRITIS
     Dosage: 2%, 2 CC
     Route: 014
     Dates: start: 20130108, end: 20130108
  4. METFORMIN XR [Concomitant]
     Indication: TYPE 2 DIABETES MELLITUS
     Dosage: 500 MG, DAILY
     Route: 048

REACTIONS (3)
  - Dizziness [Recovered/Resolved]
  - Presyncope [Recovered/Resolved]
  - Asthenia [Recovered/Resolved]
